FAERS Safety Report 20363833 (Version 4)
Quarter: 2022Q2

REPORT INFORMATION
  Report Type: Report from Study
  Country: US (occurrence: US)
  Receive Date: 20220121
  Receipt Date: 20220418
  Transmission Date: 20220721
  Serious: No
  Sender: FDA-Public Use
  Company Number: US-NOVARTISTESTPH-NVSC2022US012111

PATIENT
  Sex: Male

DRUGS (2)
  1. COSENTYX [Suspect]
     Active Substance: SECUKINUMAB
     Indication: Peripheral swelling
     Dosage: 300 MG, QMO
     Route: 058
     Dates: start: 20180301, end: 20211001
  2. COSENTYX [Suspect]
     Active Substance: SECUKINUMAB
     Indication: Psoriasis
     Dosage: 150 MG
     Route: 058

REACTIONS (3)
  - Ill-defined disorder [Unknown]
  - Arthralgia [Unknown]
  - Product use in unapproved indication [Unknown]
